FAERS Safety Report 7149425-4 (Version None)
Quarter: 2010Q4

REPORT INFORMATION
  Report Type: 
  Country: None (occurrence: None)
  Receive Date: 20101209
  Receipt Date: 20101011
  Transmission Date: 20110411
  Serious: No
  Sender: FDA-Public Use
  Company Number: US-KINGPHARMUSA00001-K201001280

PATIENT
  Age: 53 Year
  Sex: Female

DRUGS (1)
  1. EMBEDA [Suspect]
     Dosage: 20 MG, QD
     Route: 048
     Dates: start: 20100908, end: 20101011

REACTIONS (1)
  - PRURITUS [None]
